FAERS Safety Report 6670324-6 (Version None)
Quarter: 2010Q2

REPORT INFORMATION
  Report Type: 
  Country: None (occurrence: None)
  Receive Date: 20100405
  Receipt Date: 20100322
  Transmission Date: 20101027
  Serious: Yes (Hospitalization)
  Sender: FDA-Public Use
  Company Number: 1000012910

PATIENT
  Age: 66 Year
  Sex: Female
  Weight: 67 kg

DRUGS (6)
  1. ESCITALOPRAM OXALATE [Suspect]
     Indication: MAJOR DEPRESSION
     Dosage: 1 IN 1 D
     Dates: end: 20090429
  2. CLORAZEPATE DIPOTASSIUM [Concomitant]
  3. INSULIN [Concomitant]
  4. ENALAPRIL MALEATE [Concomitant]
  5. ZOLPIDEM [Concomitant]
  6. ASPIRIN [Concomitant]

REACTIONS (3)
  - ABNORMAL BEHAVIOUR [None]
  - BIPOLAR I DISORDER [None]
  - CONFUSIONAL STATE [None]
